FAERS Safety Report 7530331-8 (Version None)
Quarter: 2011Q2

REPORT INFORMATION
  Report Type: 
  Country: None (occurrence: None)
  Receive Date: 20110607
  Receipt Date: 20110524
  Transmission Date: 20111010
  Serious: Yes (Other)
  Sender: FDA-Public Use
  Company Number: CA-JNJFOC-20110511187

PATIENT
  Sex: Female
  Weight: 102 kg

DRUGS (4)
  1. SYMBICORT [Concomitant]
  2. REMICADE [Suspect]
     Route: 042
     Dates: start: 20110524
  3. VENTOLIN HFA [Concomitant]
  4. REMICADE [Suspect]
     Indication: SWEAT GLAND DISORDER
     Route: 042
     Dates: start: 20101124

REACTIONS (5)
  - DYSPNOEA [None]
  - TACHYCARDIA [None]
  - CHEST PAIN [None]
  - ERYTHEMA [None]
  - INFUSION RELATED REACTION [None]
